FAERS Safety Report 20747192 (Version 1)
Quarter: 2022Q2

REPORT INFORMATION
  Report Type: Other
  Country: EG (occurrence: None)
  Receive Date: 20220425
  Receipt Date: 20220425
  Transmission Date: 20220720
  Serious: Yes (Other)
  Sender: FDA-Public Use
  Company Number: EG-ROCHE-3077165

PATIENT
  Sex: Female
  Weight: 47 kg

DRUGS (1)
  1. OCREVUS [Suspect]
     Active Substance: OCRELIZUMAB
     Indication: Multiple sclerosis
     Route: 042
     Dates: start: 20210117

REACTIONS (1)
  - Typhoid fever [Recovering/Resolving]

NARRATIVE: CASE EVENT DATE: 20210901
